FAERS Safety Report 9182547 (Version 1)
Quarter: 2012Q4

REPORT INFORMATION
  Report Type: 
  Country: US (occurrence: US)
  Receive Date: 20121030
  Receipt Date: 20121030
  Transmission Date: 20130627
  Serious: No
  Sender: FDA-Public Use
  Company Number: US-VERTEX PHARMACEUTICAL INC.-2012-023654

PATIENT
  Age: 56 None
  Sex: Female
  Weight: 86 kg

DRUGS (3)
  1. INCIVEK [Suspect]
     Indication: HEPATITIS C
     Dosage: 750 mg, tid
     Route: 048
     Dates: start: 201209
  2. PEGASYS [Suspect]
     Indication: HEPATITIS C
     Dosage: 180 �g, qw
     Route: 058
     Dates: start: 201209
  3. RIBAVIRIN [Suspect]
     Indication: HEPATITIS C
     Dosage: 600 mg, bid
     Route: 048
     Dates: start: 201209

REACTIONS (2)
  - Dysuria [Not Recovered/Not Resolved]
  - Oliguria [Not Recovered/Not Resolved]
